FAERS Safety Report 8046638-4 (Version None)
Quarter: 2012Q1

REPORT INFORMATION
  Report Type: 
  Country: None (occurrence: None)
  Receive Date: 20120114
  Receipt Date: 20120109
  Transmission Date: 20120608
  Serious: No
  Sender: FDA-Public Use
  Company Number: US-BAYER-2012-003719

PATIENT
  Age: 68 Year
  Sex: Female
  Weight: 57 kg

DRUGS (3)
  1. ALEVE (CAPLET) [Suspect]
     Route: 048
  2. SUMATRIPTAN SUCCINATE [Concomitant]
  3. CLONAZEPAM [Concomitant]

REACTIONS (2)
  - PAIN IN EXTREMITY [None]
  - PRODUCT SHAPE ISSUE [None]
